FAERS Safety Report 18434752 (Version 1)
Quarter: 2020Q4

REPORT INFORMATION
  Report Type: Spontaneous
  Country: US (occurrence: US)
  Receive Date: 20201027
  Receipt Date: 20201027
  Transmission Date: 20210114
  Serious: Yes (Other)
  Sender: FDA-Public Use
  Company Number: None

PATIENT
  Sex: Female

DRUGS (1)
  1. SOFOSBUVIR/VELPATASVIR 400-100 MG ASEGUA THERAPEUTICS [Suspect]
     Active Substance: SOFOSBUVIR\VELPATASVIR
     Indication: CHRONIC HEPATITIS C
     Dosage: ?          OTHER DOSE:400/100 MG;?
     Route: 048
     Dates: start: 20200724

REACTIONS (2)
  - Asthma [None]
  - Chronic obstructive pulmonary disease [None]
